FAERS Safety Report 8927539 (Version 2)
Quarter: 2013Q1

REPORT INFORMATION
  Report Type: Spontaneous
  Country: MX (occurrence: MX)
  Receive Date: 20121127
  Receipt Date: 20130306
  Transmission Date: 20140127
  Serious: Yes (Hospitalization)
  Sender: FDA-Public Use
  Company Number: PHHY2012MX108060

PATIENT
  Age: 13 Year
  Sex: Male

DRUGS (5)
  1. TRILEPTAL [Suspect]
     Indication: EPILEPSY
     Dosage: 10 ML, DAILY
     Route: 048
     Dates: start: 200504
  2. TRILEPTAL [Suspect]
     Dosage: 5 ML, DAILY
     Route: 048
     Dates: start: 20121027
  3. TRILEPTAL [Suspect]
     Dosage: 6 G/ 100 ML
     Route: 048
     Dates: end: 201302
  4. VALPROIC ACID [Suspect]
     Dosage: UNK UKN, UNK
  5. RISPERIDONE [Concomitant]
     Indication: EPILEPSY
     Dosage: 0.5 ML, DAILY
     Dates: start: 2005

REACTIONS (6)
  - Candida infection [Recovered/Resolved]
  - Pneumonia [Recovered/Resolved]
  - Pancreatitis [Recovered/Resolved]
  - Hypotonia [Not Recovered/Not Resolved]
  - Muscle atrophy [Not Recovered/Not Resolved]
  - Histiocytosis haematophagic [Unknown]
